FAERS Safety Report 14534418 (Version 1)
Quarter: 2018Q1

REPORT INFORMATION
  Report Type: Spontaneous
  Country: BR (occurrence: BR)
  Receive Date: 20180215
  Receipt Date: 20180215
  Transmission Date: 20180509
  Serious: Yes (Hospitalization, Other)
  Sender: FDA-Public Use
  Company Number: BR-AMGEN-BRASP2018018774

PATIENT
  Age: 75 Year
  Sex: Female
  Weight: 60 kg

DRUGS (8)
  1. PROLIA [Suspect]
     Active Substance: DENOSUMAB
     Indication: OSTEOPOROSIS
     Dosage: Q6MO
     Route: 065
     Dates: start: 20161007
  2. VITAMIN B [Concomitant]
     Active Substance: VITAMIN B
  3. TECTA [Concomitant]
     Active Substance: PANTOPRAZOLE MAGNESIUM
  4. LIRICA [Concomitant]
     Active Substance: PREGABALIN
  5. PARACETAMOL [Concomitant]
     Active Substance: ACETAMINOPHEN
  6. COMPLEXO B [Concomitant]
  7. OSCAL [Concomitant]
     Active Substance: CALCIUM CARBONATE
  8. ROSUVASTATINA [Concomitant]
     Active Substance: ROSUVASTATIN

REACTIONS (2)
  - Product storage error [Unknown]
  - Pancreatic carcinoma [Unknown]

NARRATIVE: CASE EVENT DATE: 201712
